FAERS Safety Report 19849626 (Version 4)
Quarter: 2024Q4

REPORT INFORMATION
  Report Type: Report from Study
  Country: US (occurrence: US)
  Receive Date: 20210917
  Receipt Date: 20241206
  Transmission Date: 20250115
  Serious: Yes (Hospitalization, Other)
  Sender: TAKEDA
  Company Number: US-TAKEDA-2021TUS054476

PATIENT
  Age: 17 Year
  Sex: Male

DRUGS (3)
  1. ADVATE [Suspect]
     Active Substance: ANTIHEMOPHILIC FACTOR, HUMAN RECOMBINANT
     Indication: Haemorrhage
     Dosage: 3000 INTERNATIONAL UNIT
  2. ADVATE [Suspect]
     Active Substance: ANTIHEMOPHILIC FACTOR, HUMAN RECOMBINANT
     Dosage: 3000 INTERNATIONAL UNIT
  3. ADVATE [Suspect]
     Active Substance: ANTIHEMOPHILIC FACTOR, HUMAN RECOMBINANT

REACTIONS (8)
  - Tooth disorder [Unknown]
  - Haemarthrosis [Unknown]
  - Skin laceration [Recovered/Resolved]
  - Skin irritation [Unknown]
  - Rash papular [Unknown]
  - Dermatitis contact [Unknown]
  - Back pain [Unknown]
  - Sneezing [Unknown]

NARRATIVE: CASE EVENT DATE: 20210701
